FAERS Safety Report 6368583-2 (Version None)
Quarter: 2009Q3

REPORT INFORMATION
  Report Type: 
  Country: None (occurrence: None)
  Receive Date: 20090922
  Receipt Date: 20090609
  Transmission Date: 20100115
  Serious: No
  Sender: FDA-Public Use
  Company Number: US-BRISTOL-MYERS SQUIBB COMPANY-14649537

PATIENT
  Age: 53 Year
  Sex: Male

DRUGS (1)
  1. BUSPAR [Suspect]
     Indication: GENERALISED ANXIETY DISORDER
     Dosage: BID AS 10MG AND 5MG = 15MG /DAY
     Route: 048
     Dates: start: 20090302

REACTIONS (1)
  - LABYRINTHITIS [None]
